FAERS Safety Report 9100424 (Version 2)
Quarter: 2013Q1

REPORT INFORMATION
  Report Type: Spontaneous
  Country: US (occurrence: US)
  Receive Date: 20130215
  Receipt Date: 20130322
  Transmission Date: 20140127
  Serious: Yes (Other)
  Sender: FDA-Public Use
  Company Number: US-PFIZER INC-2013057772

PATIENT
  Age: 53 Year
  Sex: Male
  Weight: 103 kg

DRUGS (8)
  1. LYRICA [Suspect]
     Indication: FIBROMYALGIA
     Dosage: 100 MG, 3X/DAY (50 MG 2 TID )
     Dates: start: 20110217, end: 20110517
  2. LYRICA [Suspect]
     Dosage: 75 MG, 1X/DAY
     Dates: end: 201206
  3. LYRICA [Suspect]
     Dosage: 150 MG, 2X/DAY
     Dates: start: 201206
  4. TRAZODONE [Suspect]
     Dosage: UNK (30 TABLETS OF UNKNOWN DOSE AT A TIME)
     Route: 048
     Dates: start: 2012
  5. VALIUM [Concomitant]
     Dosage: 10 MG, 4X/DAY
  6. KLONOPIN [Concomitant]
     Dosage: UNK
  7. CELEXA [Concomitant]
     Dosage: UNK
  8. ARIPIPRAZOLE [Concomitant]
     Dosage: UNK

REACTIONS (8)
  - Intentional overdose [Unknown]
  - Suicide attempt [Unknown]
  - Joint swelling [Unknown]
  - Depression [Unknown]
  - Weight decreased [Unknown]
  - Pain in extremity [Unknown]
  - Movement disorder [Unknown]
  - Acne [Unknown]
